FAERS Safety Report 25204487 (Version 1)
Quarter: 2025Q2

REPORT INFORMATION
  Report Type: Report from Study
  Country: US (occurrence: US)
  Receive Date: 20250416
  Receipt Date: 20250416
  Transmission Date: 20250716
  Serious: No
  Sender: ACADIA PHARMACEUTICALS
  Company Number: US-ACADIA PHARMACEUTICALS INC.-ACA-2025-TRF-004067

PATIENT
  Sex: Female

DRUGS (1)
  1. DAYBUE [Suspect]
     Active Substance: TROFINETIDE
     Indication: Rett syndrome
     Dosage: 10 MILLILITER, QD
     Dates: start: 20250328, end: 20250401

REACTIONS (6)
  - Emotional disorder [Unknown]
  - Crying [Unknown]
  - Dyskinesia [Unknown]
  - Tremor [Unknown]
  - Breath holding [Unknown]
  - Underdose [Unknown]
